FAERS Safety Report 24788192 (Version 2)
Quarter: 2025Q3

REPORT INFORMATION
  Report Type: Report from Study
  Country: US (occurrence: US)
  Receive Date: 20241230
  Receipt Date: 20250825
  Transmission Date: 20251021
  Serious: No
  Sender: SUNOVION
  Company Number: US-SUMITOMO PHARMA SWITZERLAND GMBH-2024SPA005990

PATIENT
  Age: 74 Year
  Sex: Male

DRUGS (23)
  1. ORGOVYX [Suspect]
     Active Substance: RELUGOLIX
     Indication: Prostate cancer
     Dosage: 360 MG, SINGLE
     Route: 048
     Dates: start: 20240802, end: 20240802
  2. ORGOVYX [Suspect]
     Active Substance: RELUGOLIX
     Dosage: 120 MG, QD
     Route: 048
     Dates: start: 20240803
  3. ALPHA LIPOIC ACID [Concomitant]
     Active Substance: .ALPHA.-LIPOIC ACID
  4. Probiotics One Daily Support [Concomitant]
  5. ELIQUIS [Concomitant]
     Active Substance: APIXABAN
  6. GINGER [Concomitant]
     Active Substance: GINGER
     Route: 048
  7. IODINE [Concomitant]
     Active Substance: IODINE
     Route: 048
  8. Liver health [Concomitant]
  9. VITAMINS [Concomitant]
     Active Substance: VITAMINS
  10. NATURE-THROID [Concomitant]
     Active Substance: THYROID, PORCINE
  11. NEBIVOLOL [Concomitant]
     Active Substance: NEBIVOLOL
  12. PANTOPRAZOLE [Concomitant]
     Active Substance: PANTOPRAZOLE
  13. MINERALS\VITAMINS [Concomitant]
     Active Substance: MINERALS\VITAMINS
  14. ROSEMARY OIL [Concomitant]
     Active Substance: ROSEMARY OIL
  15. SOTALOL [Concomitant]
     Active Substance: SOTALOL
  16. TADALAFIL [Concomitant]
     Active Substance: TADALAFIL
  17. TAMSULOSIN [Concomitant]
     Active Substance: TAMSULOSIN
  18. VITAMIN B12 [Concomitant]
     Active Substance: CYANOCOBALAMIN
  19. VITAMIN D3 [Concomitant]
     Active Substance: CHOLECALCIFEROL
  20. Vitamin K2 (MK 7) with nattokinase [Concomitant]
  21. HERBALS [Concomitant]
     Active Substance: HERBALS
  22. DIETARY SUPPLEMENT [Concomitant]
     Active Substance: DIETARY SUPPLEMENT
  23. Turmeric complex [Concomitant]

REACTIONS (3)
  - Heart rate increased [Unknown]
  - Hypoaesthesia [Unknown]
  - Asthenia [Unknown]
